FAERS Safety Report 15105437 (Version 1)
Quarter: 2018Q3

REPORT INFORMATION
  Report Type: Report from Study
  Country: None (occurrence: US)
  Receive Date: 20180704
  Receipt Date: 20180704
  Transmission Date: 20181010
  Serious: Yes (Other)
  Sender: FDA-Public Use
  Company Number: US-ABBVIE-18K-163-2379879-00

PATIENT
  Sex: Female
  Weight: 80.81 kg

DRUGS (2)
  1. PROLIA [Concomitant]
     Active Substance: DENOSUMAB
     Indication: OSTEOARTHRITIS
  2. HUMIRA [Suspect]
     Active Substance: ADALIMUMAB
     Indication: RHEUMATOID ARTHRITIS
     Route: 058
     Dates: start: 2002

REACTIONS (7)
  - Plaque shift [Recovered/Resolved]
  - Feeling abnormal [Recovered/Resolved]
  - Retinal vascular occlusion [Recovered/Resolved]
  - Pain [Recovered/Resolved]
  - Blindness unilateral [Not Recovered/Not Resolved]
  - Joint stiffness [Recovered/Resolved]
  - Dental caries [Recovered/Resolved]

NARRATIVE: CASE EVENT DATE: 2016
